FAERS Safety Report 5284495-X (Version None)
Quarter: 2007Q1

REPORT INFORMATION
  Report Type: 
  Country: None (occurrence: None)
  Receive Date: 20061228
  Receipt Date: 20060726
  Transmission Date: 20070707
  Serious: Yes (Hospitalization)
  Sender: FDA-Public Use
  Company Number: 146763USA

PATIENT
  Age: 58 Year
  Sex: Female

DRUGS (1)
  1. CLOZAPINE [Suspect]
     Indication: SCHIZOPHRENIA
     Dosage: MEDICATION ERROR (700 MG, ONCE A DAY), ORAL
     Route: 048

REACTIONS (2)
  - ABDOMINAL DISTENSION [None]
  - MEDICATION ERROR [None]
